FAERS Safety Report 4298806-5 (Version None)
Quarter: 2004Q1

REPORT INFORMATION
  Report Type: 
  Country: None (occurrence: None)
  Receive Date: 20040218
  Receipt Date: 20031001
  Transmission Date: 20041129
  Serious: Yes (Hospitalization)
  Sender: FDA-Public Use
  Company Number: WAES 0310USA00417

PATIENT
  Age: 63 Year
  Sex: Female
  Weight: 56 kg

DRUGS (5)
  1. FOSAMAX [Suspect]
     Indication: BACK PAIN
     Route: 048
     Dates: start: 20030805, end: 20030814
  2. FOSAMAX [Suspect]
     Route: 048
     Dates: start: 20030826, end: 20030915
  3. KETOPROFEN [Concomitant]
     Indication: BACK PAIN
     Dates: start: 20021105, end: 20030930
  4. SENNOSIDES [Concomitant]
     Indication: CONSTIPATION
     Dates: start: 20021105, end: 20030930
  5. TANDOSPIRONE CITRATE [Concomitant]
     Indication: INSOMNIA
     Dates: start: 20021105, end: 20030930

REACTIONS (11)
  - ABDOMINAL PAIN UPPER [None]
  - ALANINE AMINOTRANSFERASE INCREASED [None]
  - ANOREXIA [None]
  - ASPARTATE AMINOTRANSFERASE INCREASED [None]
  - BLOOD ALKALINE PHOSPHATASE INCREASED [None]
  - BLOOD BILIRUBIN INCREASED [None]
  - BLOOD LACTATE DEHYDROGENASE INCREASED [None]
  - CONSTIPATION [None]
  - GAMMA-GLUTAMYLTRANSFERASE INCREASED [None]
  - HEPATIC FUNCTION ABNORMAL [None]
  - JAUNDICE [None]
